FAERS Safety Report 13318188 (Version 1)
Quarter: 2017Q1

REPORT INFORMATION
  Report Type: Spontaneous
  Country: US (occurrence: US)
  Receive Date: 20170309
  Receipt Date: 20170309
  Transmission Date: 20170428
  Serious: No
  Sender: FDA-Public Use
  Company Number: None

PATIENT
  Age: 72 Year
  Sex: Male

DRUGS (3)
  1. TASIGNA [Suspect]
     Active Substance: NILOTINIB
     Indication: SOFT TISSUE SARCOMA
  2. TASIGNA [Suspect]
     Active Substance: NILOTINIB
     Indication: TYPE 2 DIABETES MELLITUS
  3. TASIGNA [Suspect]
     Active Substance: NILOTINIB
     Indication: GASTRIC CANCER

REACTIONS (2)
  - Abdominal pain [None]
  - Flatulence [None]

NARRATIVE: CASE EVENT DATE: 20170307
